FAERS Safety Report 4993055-7 (Version None)
Quarter: 2006Q1

REPORT INFORMATION
  Report Type: 
  Country: None (occurrence: None)
  Receive Date: 20060313
  Receipt Date: 20051128
  Transmission Date: 20060701
  Serious: No
  Sender: FDA-Public Use
  Company Number: 2005-BP-16870BP

PATIENT
  Sex: Female
  Weight: 68.04 kg

DRUGS (7)
  1. SPIRIVA [Suspect]
     Indication: CHRONIC OBSTRUCTIVE PULMONARY DISEASE
     Dosage: 18 MCG (18 MCG,1 QD),IH
     Dates: start: 20051010, end: 20051024
  2. ENALAPRIL MALEATE [Concomitant]
  3. THYROID TAB [Concomitant]
  4. DIGOXIN [Concomitant]
  5. ADVAIR (SERETIDE) [Concomitant]
  6. LASIX [Concomitant]
  7. ROCALTROL [Concomitant]

REACTIONS (5)
  - APATHY [None]
  - ASTHENIA [None]
  - CONFUSIONAL STATE [None]
  - OXYGEN SATURATION DECREASED [None]
  - SOMNOLENCE [None]
